FAERS Safety Report 9168655 (Version 1)
Quarter: 2013Q1

REPORT INFORMATION
  Report Type: Spontaneous
  Country: US (occurrence: US)
  Receive Date: 20130318
  Receipt Date: 20130318
  Transmission Date: 20140127
  Serious: No
  Sender: FDA-Public Use
  Company Number: US-009507513-1303USA008190

PATIENT
  Sex: Female

DRUGS (2)
  1. CLARITIN [Suspect]
     Indication: SNEEZING
     Dosage: UNK, UNKNOWN
     Route: 048
     Dates: start: 20130312
  2. CLARITIN [Suspect]
     Indication: RHINORRHOEA

REACTIONS (2)
  - Condition aggravated [Unknown]
  - Drug ineffective [Unknown]
